FAERS Safety Report 13507366 (Version 1)
Quarter: 2017Q2

REPORT INFORMATION
  Report Type: Spontaneous
  Country: US (occurrence: US)
  Receive Date: 20170502
  Receipt Date: 20170502
  Transmission Date: 20170830
  Serious: No
  Sender: FDA-Public Use
  Company Number: None

PATIENT
  Age: 8 Year
  Sex: Male
  Weight: 26.1 kg

DRUGS (6)
  1. ZYRTEC [Concomitant]
     Active Substance: CETIRIZINE HYDROCHLORIDE
  2. BUSPIRONE [Concomitant]
     Active Substance: BUSPIRONE HYDROCHLORIDE
  3. METHYLPHENIDATE ER 36MG [Suspect]
     Active Substance: METHYLPHENIDATE
     Indication: ATTENTION DEFICIT/HYPERACTIVITY DISORDER
     Dosage: ?          QUANTITY:30 TABLET(S);?
     Route: 048
     Dates: start: 20170501, end: 20170502
  4. METHYLPHENIDATE. [Concomitant]
     Active Substance: METHYLPHENIDATE
  5. MULTI-VITAMIN [Concomitant]
     Active Substance: .ALPHA.-TOCOPHEROL ACETATE, DL-\ASCORBIC ACID\CYANOCOBALAMIN\FLUORIDE ION\FOLIC ACID\NIACIN\PYRIDOXINE\RIBOFLAVIN\THIAMINE\VITAMIN A\VITAMIN D
  6. MELATONIN [Concomitant]
     Active Substance: MELATONIN

REACTIONS (4)
  - Condition aggravated [None]
  - Attention deficit/hyperactivity disorder [None]
  - Drug ineffective [None]
  - Product quality issue [None]

NARRATIVE: CASE EVENT DATE: 20170501
